FAERS Safety Report 5255655-9 (Version None)
Quarter: 2007Q1

REPORT INFORMATION
  Report Type: 
  Country: None (occurrence: None)
  Receive Date: 20070305
  Receipt Date: 20070223
  Transmission Date: 20070707
  Serious: Yes (Other)
  Sender: FDA-Public Use
  Company Number: US-ABBOTT-07P-163-0360274-00

PATIENT
  Sex: Male
  Weight: 48.124 kg

DRUGS (1)
  1. OMNICEF [Suspect]
     Indication: SINUSITIS
     Route: 048
     Dates: start: 20070101, end: 20070101

REACTIONS (1)
  - NEPHRITIS INTERSTITIAL [None]
